FAERS Safety Report 22169053 (Version 1)
Quarter: 2023Q2

REPORT INFORMATION
  Report Type: Spontaneous
  Country: CA (occurrence: None)
  Receive Date: 20230404
  Receipt Date: 20230404
  Transmission Date: 20230722
  Serious: Yes (Other)
  Sender: FDA-Public Use
  Company Number: CA-VistaPharm, Inc.-VER202303-000175

PATIENT

DRUGS (3)
  1. ACETAMINOPHEN\HYDROCODONE [Suspect]
     Active Substance: ACETAMINOPHEN\HYDROCODONE
     Route: 064
  2. OXYCODONE [Concomitant]
     Active Substance: OXYCODONE
     Route: 064
  3. GABAPENTIN [Concomitant]
     Active Substance: GABAPENTIN
     Route: 064

REACTIONS (3)
  - Foetal biophysical profile score abnormal [Unknown]
  - Heart rate abnormal [Unknown]
  - Foetal exposure during pregnancy [Unknown]
